FAERS Safety Report 7283900-7 (Version None)
Quarter: 2011Q1

REPORT INFORMATION
  Report Type: 
  Country: None (occurrence: None)
  Receive Date: 20110209
  Receipt Date: 20110131
  Transmission Date: 20110831
  Serious: Yes (Death)
  Sender: FDA-Public Use
  Company Number: US-BAXTER-2011BH002524

PATIENT
  Sex: Female

DRUGS (3)
  1. DIANEAL [Suspect]
     Route: 033
     Dates: start: 20101026
  2. DIANEAL [Suspect]
     Route: 033
     Dates: start: 20101026
  3. DIANEAL [Suspect]
     Indication: PERITONEAL DIALYSIS
     Route: 033
     Dates: start: 20101026

REACTIONS (1)
  - DEATH [None]
